FAERS Safety Report 9718799 (Version 1)
Quarter: 2013Q4

REPORT INFORMATION
  Report Type: Spontaneous
  Country: US (occurrence: US)
  Receive Date: 20131127
  Receipt Date: 20131127
  Transmission Date: 20140711
  Serious: No
  Sender: FDA-Public Use
  Company Number: US-PFIZER INC-2013336600

PATIENT
  Sex: Female

DRUGS (6)
  1. CLEOCIN [Suspect]
     Dosage: UNK
  2. TRIMETHOBENZAMIDE HYDROCHLORIDE [Suspect]
     Dosage: UNK
  3. HYDROXYZINE HCL [Suspect]
     Dosage: UNK
  4. NITROFURANTOIN [Suspect]
     Dosage: UNK
  5. CEPHALEXIN [Suspect]
     Dosage: UNK
  6. LOXAPINE [Suspect]
     Dosage: UNK

REACTIONS (1)
  - Drug hypersensitivity [Unknown]
